FAERS Safety Report 4933985-5 (Version None)
Quarter: 2006Q1

REPORT INFORMATION
  Report Type: 
  Country: None (occurrence: None)
  Receive Date: 20060303
  Receipt Date: 20060217
  Transmission Date: 20060701
  Serious: Yes (Hospitalization)
  Sender: FDA-Public Use
  Company Number: 2006025400

PATIENT
  Age: 32 Year
  Sex: Male

DRUGS (8)
  1. DOXORUBICIN HYDROCHLORIDE [Suspect]
     Indication: ACUTE LYMPHOCYTIC LEUKAEMIA
     Dosage: INTRAVENOUS
     Route: 042
     Dates: start: 20051027, end: 20051114
  2. CYTARABINE [Suspect]
     Indication: ACUTE LYMPHOCYTIC LEUKAEMIA
     Dosage: INTRAVENOUS
     Route: 042
     Dates: start: 20051129, end: 20051129
  3. ELSPAR [Suspect]
     Indication: ACUTE LYMPHOCYTIC LEUKAEMIA
     Dosage: INTRAVENOUS
     Route: 042
     Dates: start: 20051027, end: 20051114
  4. ETOPOSIDE [Suspect]
     Indication: ACUTE LYMPHOCYTIC LEUKAEMIA
     Dosage: INTRAVENOUS
     Route: 042
     Dates: start: 20051129, end: 20051129
  5. ELDISINE [Suspect]
     Indication: ACUTE LYMPHOCYTIC LEUKAEMIA
     Dosage: INTRAVENOUS
     Route: 042
     Dates: start: 20051027, end: 20051114
  6. DEXAMETHASONE [Suspect]
     Indication: ACUTE LYMPHOCYTIC LEUKAEMIA
  7. LANVIS (TIOGUANINE) [Suspect]
     Indication: ACUTE LYMPHOCYTIC LEUKAEMIA
     Dosage: ORAL
     Route: 048
     Dates: start: 20051129, end: 20051206
  8. BAACTRIM (SULFAMETHOXAZOLE, TRIMETHOPRIM) [Concomitant]

REACTIONS (5)
  - BLOOD LACTATE DEHYDROGENASE INCREASED [None]
  - HEPATIC FAILURE [None]
  - HYPERTRIGLYCERIDAEMIA [None]
  - PANCYTOPENIA [None]
  - VENOOCCLUSIVE LIVER DISEASE [None]
